FAERS Safety Report 8614772 (Version 2)
Quarter: 2013Q2

REPORT INFORMATION
  Report Type: Spontaneous
  Country: US (occurrence: US)
  Receive Date: 20120614
  Receipt Date: 20130618
  Transmission Date: 20140414
  Serious: Yes (Hospitalization, Disabling)
  Sender: FDA-Public Use
  Company Number: US-ASTRAZENECA-2012SE35809

PATIENT
  Sex: Female

DRUGS (30)
  1. NEXIUM [Suspect]
     Indication: GASTROOESOPHAGEAL REFLUX DISEASE
     Route: 048
  2. NEXIUM [Suspect]
     Indication: GASTROOESOPHAGEAL REFLUX DISEASE
     Route: 048
     Dates: start: 20070510
  3. NEXIUM [Suspect]
     Indication: GASTROOESOPHAGEAL REFLUX DISEASE
     Route: 048
     Dates: start: 20100106
  4. ROLAIDS [Concomitant]
  5. HYDROCO-APAP [Concomitant]
     Dosage: 7.5-650 MG
     Dates: start: 20071116
  6. SPIRONOLACT [Concomitant]
     Dates: start: 20100104
  7. SPIRONOLACT [Concomitant]
     Dates: start: 20100104, end: 20120703
  8. POTASSIUM CHLORIDE [Concomitant]
     Dates: start: 20071119
  9. METOPROLOL [Concomitant]
     Dates: start: 20070820
  10. METOPROLOL [Concomitant]
     Dates: start: 20100106
  11. ACIPHEX [Concomitant]
     Dates: start: 20100111
  12. AVELOX [Concomitant]
     Dates: start: 20100113
  13. HYDROXYZINE HCL [Concomitant]
     Dates: start: 20100116
  14. PREDNISONE [Concomitant]
     Dates: start: 20100118
  15. CLINDAMYCIN [Concomitant]
     Dates: start: 20100120
  16. ABILIFY [Concomitant]
     Dates: start: 20071024
  17. FUROSEMIDE [Concomitant]
     Dates: start: 20070925
  18. AMLODIPINE [Concomitant]
     Dates: start: 20100210
  19. LIPITOR [Concomitant]
     Dates: start: 20100210
  20. CEPHALEXIN [Concomitant]
     Dates: start: 20100222
  21. ACTONEL [Concomitant]
     Dates: start: 20100903
  22. TRAZODONE [Concomitant]
     Dates: start: 20071119
  23. LISINOPRIL [Concomitant]
     Dates: start: 20070312
  24. TOPROL XL [Concomitant]
     Route: 048
     Dates: start: 20070519
  25. IBUPROFEN [Concomitant]
     Dates: start: 20070720
  26. CYCLOBENZAPR [Concomitant]
     Dates: start: 20071017
  27. CELEBREX [Concomitant]
     Dates: start: 20071119
  28. DICLOFENAC [Concomitant]
     Dates: start: 20090708
  29. NAPROXEN [Concomitant]
     Dates: start: 20091110
  30. SPIRIVA [Concomitant]
     Dates: start: 20120706

REACTIONS (11)
  - Asthma [Unknown]
  - Fall [Unknown]
  - Back disorder [Unknown]
  - Dyspnoea [Unknown]
  - Osteoporosis [Unknown]
  - Osteoarthritis [Unknown]
  - Bone pain [Unknown]
  - Multiple fractures [Unknown]
  - Chronic obstructive pulmonary disease [Unknown]
  - Rheumatoid arthritis [Unknown]
  - Depression [Unknown]
